FAERS Safety Report 16797950 (Version 1)
Quarter: 2019Q3

REPORT INFORMATION
  Report Type: Spontaneous
  Country: DE (occurrence: DE)
  Receive Date: 20190912
  Receipt Date: 20190912
  Transmission Date: 20191005
  Serious: Yes (Other)
  Sender: FDA-Public Use
  Company Number: DE-TEVA-2019-DE-1106099

PATIENT
  Sex: Female
  Weight: 55 kg

DRUGS (4)
  1. IBUPROFEN. [Concomitant]
     Active Substance: IBUPROFEN
  2. QUETIAPIN (QUETIAPINE) [Suspect]
     Active Substance: QUETIAPINE
  3. PREDNISOLON [Concomitant]
     Active Substance: PREDNISOLONE
  4. MIRTAZAPIN [Concomitant]
     Active Substance: MIRTAZAPINE

REACTIONS (5)
  - Dementia [Not Recovered/Not Resolved]
  - Confusional state [Not Recovered/Not Resolved]
  - General physical health deterioration [Not Recovered/Not Resolved]
  - General physical condition abnormal [Not Recovered/Not Resolved]
  - Muscular weakness [Not Recovered/Not Resolved]
